FAERS Safety Report 9539127 (Version 1)
Quarter: 2013Q2

REPORT INFORMATION
  Report Type: Spontaneous
  Country: US (occurrence: None)
  Receive Date: 20130507
  Receipt Date: 20130507
  Transmission Date: 20140414
  Serious: No
  Sender: FDA-Public Use
  Company Number: PHEH2013US004971

PATIENT
  Age: 4 Year
  Sex: Female

DRUGS (4)
  1. AFINITOR [Suspect]
     Indication: TUBEROUS SCLEROSIS
     Route: 048
     Dates: start: 20120521
  2. LAMICTAL [Concomitant]
  3. MELATONIN [Concomitant]
  4. MIRALAX [Concomitant]

REACTIONS (1)
  - Stomatitis [None]
